FAERS Safety Report 21194216 (Version 1)
Quarter: 2022Q3

REPORT INFORMATION
  Report Type: Report from Study
  Country: US (occurrence: US)
  Receive Date: 20220810
  Receipt Date: 20220810
  Transmission Date: 20221026
  Serious: Yes (Other)
  Sender: FDA-Public Use
  Company Number: US-ABBVIE-22K-163-4496654-00

PATIENT
  Sex: Female

DRUGS (1)
  1. RINVOQ [Suspect]
     Active Substance: UPADACITINIB
     Indication: Rheumatoid arthritis
     Route: 048
     Dates: start: 202201

REACTIONS (5)
  - Foot deformity [Unknown]
  - Pain in extremity [Unknown]
  - Peripheral swelling [Unknown]
  - Musculoskeletal stiffness [Unknown]
  - Night sweats [Recovered/Resolved]

NARRATIVE: CASE EVENT DATE: 20220101
